FAERS Safety Report 4724329-2 (Version None)
Quarter: 2005Q3

REPORT INFORMATION
  Report Type: 
  Country: None (occurrence: None)
  Receive Date: 20050722
  Receipt Date: 20050707
  Transmission Date: 20060218
  Serious: Yes (Hospitalization)
  Sender: FDA-Public Use
  Company Number: 2005-0008407

PATIENT
  Age: 37 Year
  Sex: Female

DRUGS (4)
  1. VIREAD [Suspect]
     Dates: start: 20050101, end: 20050101
  2. DIDANOSIEN (DIDANOSINE) [Concomitant]
  3. ATAZANAVIR (ATAZANAVIR) [Concomitant]
  4. RITONAVIR (RITONAVIR) [Concomitant]

REACTIONS (19)
  - ASPARTATE AMINOTRANSFERASE INCREASED [None]
  - BLOOD ALKALINE PHOSPHATASE INCREASED [None]
  - BLOOD BILIRUBIN INCREASED [None]
  - BLOOD CHLORIDE INCREASED [None]
  - BLOOD CREATININE ABNORMAL [None]
  - BLOOD GLUCOSE INCREASED [None]
  - BLOOD LACTIC ACID DECREASED [None]
  - BLOOD PH DECREASED [None]
  - BLOOD SODIUM INCREASED [None]
  - BLOOD UREA DECREASED [None]
  - FANCONI SYNDROME ACQUIRED [None]
  - GAMMA-GLUTAMYLTRANSFERASE INCREASED [None]
  - HAEMORRHAGE [None]
  - HEPATIC STEATOSIS [None]
  - LIVER FUNCTION TEST ABNORMAL [None]
  - MALAISE [None]
  - PAIN IN EXTREMITY [None]
  - PO2 DECREASED [None]
  - WEIGHT DECREASED [None]
